FAERS Safety Report 4906642-9 (Version None)
Quarter: 2006Q1

REPORT INFORMATION
  Report Type: 
  Country: None (occurrence: None)
  Receive Date: 20060209
  Receipt Date: 20060206
  Transmission Date: 20060701
  Serious: Yes (Other)
  Sender: FDA-Public Use
  Company Number: GB-GLAXOSMITHKLINE-B0409619A

PATIENT
  Sex: Female

DRUGS (2)
  1. FLIXONASE [Suspect]
     Route: 065
  2. TOPICAL STEROIDS [Suspect]
     Indication: SKIN IRRITATION
     Route: 065

REACTIONS (2)
  - EYE DISORDER [None]
  - RETINOPATHY [None]
